FAERS Safety Report 11398775 (Version 2)
Quarter: 2015Q3

REPORT INFORMATION
  Report Type: Report from Study
  Country: BR (occurrence: BR)
  Receive Date: 20150820
  Receipt Date: 20150903
  Transmission Date: 20151125
  Serious: Yes (Other)
  Sender: FDA-Public Use
  Company Number: PHHY2015BR099796

PATIENT
  Age: 69 Year
  Sex: Female
  Weight: 65 kg

DRUGS (8)
  1. BENZAMIDES [Concomitant]
     Indication: HYPERTENSION
     Dosage: 1 DF, QD (AT NIGHT, STARTED 2 YEARS AGO)
     Route: 048
  2. METFORMIN [Concomitant]
     Active Substance: METFORMIN HYDROCHLORIDE
     Indication: DIABETES MELLITUS
     Dosage: 3 DF, QD (STARTED 2 YEARS AGO)
     Route: 048
  3. COSACORT [Concomitant]
     Indication: RHEUMATOID ARTHRITIS
     Dosage: 1 DF, QD (STARTED 2 YEARS AGO)
     Route: 048
  4. LOSARTAN. [Concomitant]
     Active Substance: LOSARTAN
     Indication: HYPERTENSION
     Dosage: 2 DF, QD (STARTED 2 YEARS AGO)
     Route: 048
  5. HIGROTON [Concomitant]
     Active Substance: CHLORTHALIDONE
     Indication: HYPERTENSION
     Dosage: 1 DF, QD (STARTED 5 YEARS AGO)
     Route: 048
  6. ACLASTA [Suspect]
     Active Substance: ZOLEDRONIC ACID
     Indication: OSTEOPOROSIS
     Dosage: 1 DF, Q12MO
     Route: 042
     Dates: start: 201408
  7. RETINOL [Concomitant]
     Active Substance: RETINOL
     Indication: RHEUMATOID ARTHRITIS
     Dosage: 1 DF, QD (STARTED 2 YEARS AGO)
     Route: 048
  8. BENERVA [Concomitant]
     Active Substance: THIAMINE
     Indication: RHEUMATOID ARTHRITIS
     Dosage: 1 DF, QD (STARTED 2 YEARS AGO)
     Route: 048

REACTIONS (6)
  - Intraocular pressure test abnormal [Not Recovered/Not Resolved]
  - Paralysis [Recovered/Resolved]
  - Pain [Recovered/Resolved]
  - Glaucoma [Recovering/Resolving]
  - Blindness [Not Recovered/Not Resolved]
  - Cataract [Recovering/Resolving]

NARRATIVE: CASE EVENT DATE: 201408
